FAERS Safety Report 10144379 (Version 2)
Quarter: 2014Q3

REPORT INFORMATION
  Report Type: Spontaneous
  Country: JP (occurrence: JP)
  Receive Date: 20140430
  Receipt Date: 20140703
  Transmission Date: 20150326
  Serious: Yes (Hospitalization)
  Sender: FDA-Public Use
  Company Number: JP-BIOMARINAP-JP-2014-103078

PATIENT
  Age: 5 Month
  Sex: Female
  Weight: 7 kg

DRUGS (5)
  1. SOLITA-T NO.2 [Concomitant]
     Indication: ENTERITIS
     Dosage: UNK
     Dates: start: 20131203, end: 20131207
  2. KUVAN [Suspect]
     Active Substance: SAPROPTERIN DIHYDROCHLORIDE
     Dosage: 4.9 MG/KG, QD
     Route: 048
     Dates: start: 20140107
  3. VEEN D [Concomitant]
     Active Substance: CALCIUM CHLORIDE\DEXTROSE\POTASSIUM CHLORIDE\SODIUM ACETATE\SODIUM CHLORIDE
     Indication: ENTERITIS
     Dosage: UNK
     Route: 040
     Dates: start: 20131203, end: 20131207
  4. KUVAN [Suspect]
     Active Substance: SAPROPTERIN DIHYDROCHLORIDE
     Indication: PHENYLKETONURIA
     Dosage: 10.3 MG/KG, QD
     Route: 048
     Dates: start: 20130716, end: 20140106
  5. MENESIT [Concomitant]
     Active Substance: CARBIDOPA\LEVODOPA
     Indication: PRODUCT USED FOR UNKNOWN INDICATION
     Dosage: 020713 UNK, UNK
     Dates: start: 20130702

REACTIONS (2)
  - Dysmyelination [Recovered/Resolved]
  - Gastroenteritis adenovirus [Recovered/Resolved]

NARRATIVE: CASE EVENT DATE: 20130903
